FAERS Safety Report 5359411-2 (Version None)
Quarter: 2007Q2

REPORT INFORMATION
  Report Type: 
  Country: None (occurrence: None)
  Receive Date: 20070615
  Receipt Date: 20070605
  Transmission Date: 20071010
  Serious: Yes (Other)
  Sender: FDA-Public Use
  Company Number: US-PFIZER INC-2007035546

PATIENT
  Sex: Female
  Weight: 72.6 kg

DRUGS (2)
  1. SERTRALINE [Suspect]
     Indication: GENERALISED ANXIETY DISORDER
     Route: 048
     Dates: start: 20070109, end: 20070502
  2. WELLBUTRIN [Concomitant]
     Route: 048

REACTIONS (3)
  - ANXIETY [None]
  - OBSESSIVE-COMPULSIVE DISORDER [None]
  - RASH [None]
